FAERS Safety Report 4470502-0 (Version None)
Quarter: 2004Q4

REPORT INFORMATION
  Report Type: 
  Country: None (occurrence: None)
  Receive Date: 20041005
  Receipt Date: 20040924
  Transmission Date: 20050328
  Serious: Yes (Hospitalization)
  Sender: FDA-Public Use
  Company Number: 208748

PATIENT
  Age: 37 Year
  Sex: Female
  Weight: 76.6 kg

DRUGS (21)
  1. XOLAIR [Suspect]
     Indication: ASTHMA
     Dosage: 375 MG, Q2W, SUBCUTANEOUS
     Route: 058
     Dates: start: 20040819
  2. ZYRTEC [Concomitant]
  3. ADVAIR (FLUTICASONE PROPIONATE, SALMETEROL XINAFOATE) [Concomitant]
  4. NEXIUM [Concomitant]
  5. PROVENTIL (ALBUTEROL, ALBUTEROL SULFATE) [Concomitant]
  6. TOPAMAX [Concomitant]
  7. DIAZEPAM [Concomitant]
  8. DIPHENHIST (DIPHENHYDRAMINE HYDROCHLORIDE) [Concomitant]
  9. WELLBUTRIN [Concomitant]
  10. REGLAN [Concomitant]
  11. TRAZODONE (TRAZODONE HYDROCHLORIDE) [Concomitant]
  12. ACIPHEX [Concomitant]
  13. PEPCID [Concomitant]
  14. VICODIN (HYDROCODONE BITARTRATE, ACETAMINOPHEN) [Concomitant]
  15. PANTOPRAZOLE (PANTOPRAZOLE) [Concomitant]
  16. PHENERGAN [Concomitant]
  17. ALBUTEROL NEBULIZER (ALBUTEROL SULFATE, ALBUTEROL) [Concomitant]
  18. NASACORT AQ (TRIAMCINOLONE ACETONIDE) [Concomitant]
  19. HYDROCHLOROTHIAZIDE [Concomitant]
  20. MYLANTA (SIMETHICONE, MAGNESIUM HYDROXIDE, ALUMINUM HYDROXIDE) [Concomitant]
  21. ZANTAC [Concomitant]

REACTIONS (11)
  - ABDOMINAL PAIN UPPER [None]
  - ABDOMINAL RIGIDITY [None]
  - APHAGIA [None]
  - DIVERTICULITIS [None]
  - DYSPEPSIA [None]
  - EOSINOPHILIA [None]
  - GASTROOESOPHAGEAL REFLUX DISEASE [None]
  - HEADACHE [None]
  - NEUTROPHIL COUNT INCREASED [None]
  - WEIGHT DECREASED [None]
  - WHITE BLOOD CELL COUNT INCREASED [None]
